FAERS Safety Report 7415744-7 (Version None)
Quarter: 2011Q2

REPORT INFORMATION
  Report Type: 
  Country: None (occurrence: None)
  Receive Date: 20110406
  Receipt Date: 20110322
  Transmission Date: 20111010
  Serious: Yes (Other)
  Sender: FDA-Public Use
  Company Number: DSA_45276_2011

PATIENT
  Age: 11 Year
  Sex: Male

DRUGS (1)
  1. ENALAPRIL MALEATE [Suspect]
     Indication: HYPERTENSION
     Dosage: 0.75 MG BID ORAL; 1.25 MG BID, ORAL
     Route: 048

REACTIONS (2)
  - URINE OUTPUT DECREASED [None]
  - HEADACHE [None]
